FAERS Safety Report 19721231 (Version 1)
Quarter: 2021Q3

REPORT INFORMATION
  Report Type: Spontaneous
  Country: FR (occurrence: FR)
  Receive Date: 20210819
  Receipt Date: 20210819
  Transmission Date: 20211014
  Serious: Yes (Death)
  Sender: FDA-Public Use
  Company Number: FR-TEVA-2021-FR-1941813

PATIENT
  Age: 32 Year
  Sex: Male

DRUGS (3)
  1. HYDROXYZINE (CHLORHYDRATE D^) [Suspect]
     Active Substance: HYDROXYZINE HYDROCHLORIDE
     Indication: PRODUCT USED FOR UNKNOWN INDICATION
     Dosage: UNKNOWN, THERAPY START DATE: NASK
     Route: 065
     Dates: end: 202011
  2. DEPAKINE [Suspect]
     Active Substance: VALPROATE SODIUM
     Indication: PRODUCT USED FOR UNKNOWN INDICATION
     Dosage: UNKNOWN, THERAPY START DATE: NASK
     Route: 065
     Dates: end: 202011
  3. CANNABIS [Suspect]
     Active Substance: CANNABIS SATIVA SUBSP. INDICA TOP
     Dosage: UNKNOWN, THERAPY START DATE: NASK
     Route: 065
     Dates: end: 202011

REACTIONS (2)
  - Multiple injuries [Fatal]
  - Drug abuse [Fatal]

NARRATIVE: CASE EVENT DATE: 202011
